FAERS Safety Report 6723269-7 (Version None)
Quarter: 2010Q2

REPORT INFORMATION
  Report Type: 
  Country: None (occurrence: None)
  Receive Date: 20100512
  Receipt Date: 20100512
  Transmission Date: 20101027
  Serious: Yes (Other)
  Sender: FDA-Public Use
  Company Number: None

PATIENT
  Sex: Male
  Weight: 93.8946 kg

DRUGS (1)
  1. CELLCEPT [Suspect]
     Indication: RENAL TRANSPLANT
     Dosage: 250MG 1 BID ORAL
     Route: 048

REACTIONS (3)
  - ABDOMINAL PAIN [None]
  - GASTROINTESTINAL DISORDER [None]
  - PRODUCT SUBSTITUTION ISSUE [None]
